FAERS Safety Report 17196533 (Version 1)
Quarter: 2019Q4

REPORT INFORMATION
  Report Type: Spontaneous
  Country: US (occurrence: US)
  Receive Date: 20191224
  Receipt Date: 20191224
  Transmission Date: 20200122
  Serious: No
  Sender: FDA-Public Use
  Company Number: US-VERTEX PHARMACEUTICALS-2019-012814

PATIENT
  Sex: Female

DRUGS (1)
  1. TRIKAFTA [Suspect]
     Active Substance: ELEXACAFTOR\IVACAFTOR\TEZACAFTOR
     Indication: CYSTIC FIBROSIS
     Dosage: 2 TAB (ELEX 100MG/ TEZA 50MG/ IVA 75MG) AM, 1 TAB (IVA 150MG) PM
     Route: 048
     Dates: start: 20191129

REACTIONS (2)
  - Choking [Unknown]
  - Cough [Unknown]

NARRATIVE: CASE EVENT DATE: 2019
